APPROVED DRUG PRODUCT: CEFAZOLIN SODIUM
Active Ingredient: CEFAZOLIN SODIUM
Strength: EQ 100GM BASE/VIAL
Dosage Form/Route: INJECTABLE;INJECTION
Application: A065141 | Product #001
Applicant: SAMSON MEDICAL TECHNOLOGIES LLC
Approved: Nov 29, 2006 | RLD: No | RS: Yes | Type: RX